FAERS Safety Report 5974417-8 (Version None)
Quarter: 2008Q4

REPORT INFORMATION
  Report Type: 
  Country: None (occurrence: None)
  Receive Date: 20081201
  Receipt Date: 20080129
  Transmission Date: 20090506
  Serious: No
  Sender: FDA-Public Use
  Company Number: US-AMGEN-KDL261310

PATIENT
  Sex: Female

DRUGS (7)
  1. ENBREL [Suspect]
     Indication: PSORIASIS
     Route: 058
     Dates: start: 20070201
  2. PREVACID [Concomitant]
     Route: 048
  3. TOPROL-XL [Concomitant]
     Route: 048
  4. XANAX [Concomitant]
     Route: 048
  5. LEXAPRO [Concomitant]
     Route: 048
  6. NEXIUM [Concomitant]
     Route: 048
  7. PAXIL [Concomitant]
     Route: 048

REACTIONS (2)
  - COLITIS ULCERATIVE [None]
  - PSORIASIS [None]
